FAERS Safety Report 12579896 (Version 2)
Quarter: 2016Q3

REPORT INFORMATION
  Report Type: Report from Study
  Country: US (occurrence: US)
  Receive Date: 20160721
  Receipt Date: 20160819
  Transmission Date: 20161109
  Serious: Yes (Hospitalization)
  Sender: FDA-Public Use
  Company Number: US-ACTELION-A-NJ2016-137924

PATIENT
  Age: 78 Year
  Sex: Female

DRUGS (1)
  1. VALCHLOR [Suspect]
     Active Substance: MECHLORETHAMINE
     Indication: MYCOSIS FUNGOIDES
     Dosage: UNK, QOD
     Route: 061
     Dates: start: 20160608

REACTIONS (11)
  - Nausea [Unknown]
  - Diarrhoea [Unknown]
  - Blood glucose decreased [Unknown]
  - Abdominal discomfort [Unknown]
  - Vomiting [Unknown]
  - Pruritus [Unknown]
  - Skin discolouration [Unknown]
  - Drug ineffective [Unknown]
  - Disease progression [Unknown]
  - Blood pressure increased [Unknown]
  - Gastric disorder [Unknown]
